FAERS Safety Report 24688965 (Version 1)
Quarter: 2024Q4

REPORT INFORMATION
  Report Type: Spontaneous
  Country: FR (occurrence: FR)
  Receive Date: 20241203
  Receipt Date: 20241203
  Transmission Date: 20250114
  Serious: Yes (Hospitalization)
  Sender: AMGEN
  Company Number: FR-AMGEN-FRASP2024234079

PATIENT
  Age: 92 Year
  Sex: Male

DRUGS (3)
  1. ARANESP [Suspect]
     Active Substance: DARBEPOETIN ALFA
     Indication: Chronic kidney disease
     Dosage: ARANESP (20 MUG)
     Route: 065
     Dates: start: 202409
  2. URAPIDIL [Concomitant]
     Active Substance: URAPIDIL
  3. VASCOR [Concomitant]
     Active Substance: BEPRIDIL HYDROCHLORIDE

REACTIONS (1)
  - Blood pressure increased [Unknown]

NARRATIVE: CASE EVENT DATE: 20240901
